FAERS Safety Report 7782769-1 (Version None)
Quarter: 2011Q3

REPORT INFORMATION
  Report Type: 
  Country: None (occurrence: None)
  Receive Date: 20110927
  Receipt Date: 20110927
  Transmission Date: 20111222
  Serious: Yes (Hospitalization)
  Sender: FDA-Public Use
  Company Number: None

PATIENT
  Sex: Male
  Weight: 94.3 kg

DRUGS (4)
  1. FLUOROURACIL [Suspect]
     Dosage: 4300 MG
  2. LEUCOVORIN CALCIUM [Suspect]
     Dosage: 820 MG
  3. ELOXATIN [Suspect]
     Dosage: 135 MG
  4. BEVACIZUMAB (RHUMAB VEGF) [Suspect]
     Dosage: 460 MG

REACTIONS (2)
  - ABDOMINAL DISTENSION [None]
  - ABDOMINAL PAIN [None]
